FAERS Safety Report 23638188 (Version 2)
Quarter: 2024Q2

REPORT INFORMATION
  Report Type: Spontaneous
  Country: BE (occurrence: BE)
  Receive Date: 20240315
  Receipt Date: 20240509
  Transmission Date: 20240716
  Serious: Yes (Other)
  Sender: FDA-Public Use
  Company Number: BE-GILEAD-2024-0665537

PATIENT
  Age: 56 Year
  Sex: Female

DRUGS (10)
  1. VEKLURY [Interacting]
     Active Substance: REMDESIVIR
     Indication: COVID-19
     Dosage: TWO DOSES OF 100 MG ON JAN 7
     Route: 042
     Dates: start: 20230107, end: 20230108
  2. PIPERACILLIN SODIUM\TAZOBACTAM SODIUM [Suspect]
     Active Substance: PIPERACILLIN SODIUM\TAZOBACTAM SODIUM
     Indication: Product used for unknown indication
     Dosage: UNK
     Route: 065
  3. ACYCLOVIR [Suspect]
     Active Substance: ACYCLOVIR
     Indication: Infection prophylaxis
     Dosage: UNK
     Route: 065
  4. PANTOPRAZOLE [Interacting]
     Active Substance: PANTOPRAZOLE
     Indication: Product used for unknown indication
     Dosage: UNK
     Route: 065
  5. URSODIOL [Suspect]
     Active Substance: URSODIOL
     Indication: Product used for unknown indication
     Dosage: UNK
     Route: 065
  6. FLUCONAZOLE [Interacting]
     Active Substance: FLUCONAZOLE
     Indication: Infection prophylaxis
     Dosage: UNK
     Route: 065
     Dates: start: 20221230
  7. TACROLIMUS [Interacting]
     Active Substance: TACROLIMUS
     Indication: Immunosuppressant drug therapy
     Dosage: 13.7 NG/ML
     Route: 065
  8. MYCOPHENOLIC ACID [Interacting]
     Active Substance: MYCOPHENOLIC ACID
     Indication: Immunosuppressant drug therapy
     Dosage: UNK
     Route: 065
  9. NIRMATRELVIR [Concomitant]
     Active Substance: NIRMATRELVIR
     Dosage: 600 MG/DAY
     Dates: start: 20221226, end: 20221230
  10. RITONAVIR [Concomitant]
     Active Substance: RITONAVIR
     Dosage: (200MG/DAY)
     Dates: start: 20221226, end: 20221230

REACTIONS (4)
  - Lactic acidosis [Recovering/Resolving]
  - Aspartate aminotransferase increased [Recovering/Resolving]
  - Alanine aminotransferase increased [Recovering/Resolving]
  - Off label use [Recovered/Resolved]
